FAERS Safety Report 13101535 (Version 1)
Quarter: 2017Q1

REPORT INFORMATION
  Report Type: Spontaneous
  Country: US (occurrence: US)
  Receive Date: 20170110
  Receipt Date: 20170110
  Transmission Date: 20170428
  Serious: Yes (Hospitalization)
  Sender: FDA-Public Use
  Company Number: US-MYLANLABS-2016M1059036

PATIENT

DRUGS (1)
  1. FLUOROURACIL. [Suspect]
     Active Substance: FLUOROURACIL
     Indication: ANAL SQUAMOUS CELL CARCINOMA
     Dosage: 4000 MG/ME2 (6720 MG) OVER 4 DAYS VIA CONTINUOUS INFUSION
     Route: 050

REACTIONS (2)
  - Mucosal inflammation [Recovered/Resolved]
  - Haematotoxicity [Recovered/Resolved]
